FAERS Safety Report 7618467-4 (Version None)
Quarter: 2011Q3

REPORT INFORMATION
  Report Type: 
  Country: None (occurrence: None)
  Receive Date: 20110718
  Receipt Date: 20110708
  Transmission Date: 20111222
  Serious: Yes (Other)
  Sender: FDA-Public Use
  Company Number: SG-MERCK-1107USA01330

PATIENT
  Age: 64 Year
  Sex: Female

DRUGS (1)
  1. ZETIA [Suspect]
     Route: 048
     Dates: start: 20100801

REACTIONS (5)
  - GINGIVAL PAIN [None]
  - GINGIVAL SWELLING [None]
  - MYALGIA [None]
  - MUSCULOSKELETAL DISCOMFORT [None]
  - MUSCULAR WEAKNESS [None]
